FAERS Safety Report 9639178 (Version 3)
Quarter: 2013Q4

REPORT INFORMATION
  Report Type: Spontaneous
  Country: FR (occurrence: FR)
  Receive Date: 20131022
  Receipt Date: 20131125
  Transmission Date: 20140711
  Serious: Yes (Hospitalization, Disabling)
  Sender: FDA-Public Use
  Company Number: FR-ROCHE-1290018

PATIENT
  Age: 68 Year
  Sex: Male
  Weight: 107 kg

DRUGS (10)
  1. ZELBORAF [Suspect]
     Indication: MALIGNANT MELANOMA
     Route: 048
     Dates: start: 20130813
  2. L-THYROXINE [Concomitant]
     Indication: HYPOTHYROIDISM
     Dosage: LONG TERM TREATMENT
     Route: 048
  3. APROVEL [Concomitant]
     Indication: HYPERTENSION
     Dosage: LONG-TERM TREATMENT
     Route: 048
  4. TRUSOPT [Concomitant]
     Indication: GLAUCOMA
     Route: 047
  5. TRUSOPT [Concomitant]
     Indication: CATARACT
  6. LUMIGAN [Concomitant]
     Indication: GLAUCOMA
     Route: 047
  7. LUMIGAN [Concomitant]
     Indication: CATARACT
  8. NOVONORM [Concomitant]
     Indication: DIABETES MELLITUS
     Route: 048
  9. GLIBENCLAMIDE [Concomitant]
     Indication: TYPE 2 DIABETES MELLITUS
     Route: 065
  10. PARACETAMOL [Concomitant]
     Indication: PAIN
     Route: 048

REACTIONS (2)
  - Blindness [Not Recovered/Not Resolved]
  - Optic ischaemic neuropathy [Not Recovered/Not Resolved]
